FAERS Safety Report 6803203-1 (Version None)
Quarter: 2010Q2

REPORT INFORMATION
  Report Type: 
  Country: None (occurrence: None)
  Receive Date: 20100628
  Receipt Date: 20100618
  Transmission Date: 20101027
  Serious: Yes (Hospitalization)
  Sender: FDA-Public Use
  Company Number: B0604384A

PATIENT
  Sex: Female
  Weight: 80 kg

DRUGS (6)
  1. LAPATINIB [Suspect]
     Indication: BREAST CANCER
     Dosage: 1500MG PER DAY
     Route: 048
     Dates: start: 20091027
  2. PACLITAXEL [Suspect]
     Indication: BREAST CANCER
     Dosage: 80MGM2 WEEKLY
     Route: 042
     Dates: start: 20091027
  3. KYTRIL [Concomitant]
     Dosage: 3MG PER DAY
     Route: 042
     Dates: start: 20090720
  4. DEXAMETHASONE [Concomitant]
     Dosage: 20MG PER DAY
     Route: 042
  5. ZANTAC [Concomitant]
     Dosage: 50MG PER DAY
     Route: 042
     Dates: start: 20091027
  6. PHENERGAN [Concomitant]
     Dosage: 6.25MG PER DAY
     Route: 042
     Dates: start: 20091027

REACTIONS (4)
  - DEHYDRATION [None]
  - DIARRHOEA [None]
  - NAUSEA [None]
  - VOMITING [None]
